FAERS Safety Report 10351265 (Version 1)
Quarter: 2014Q3

REPORT INFORMATION
  Report Type: Spontaneous
  Country: US (occurrence: US)
  Receive Date: 20140730
  Receipt Date: 20140730
  Transmission Date: 20150326
  Serious: Yes (Other)
  Sender: FDA-Public Use
  Company Number: US-GLAXOSMITHKLINE-A1082354A

PATIENT
  Age: 66 Year
  Sex: Female

DRUGS (15)
  1. TYLENOL [Suspect]
     Active Substance: ACETAMINOPHEN
     Indication: HEADACHE
     Route: 065
  2. ASPIRIN. [Concomitant]
     Active Substance: ASPIRIN
  3. RANITIDINE [Concomitant]
     Active Substance: RANITIDINE\RANITIDINE HYDROCHLORIDE
  4. DUONEB [Concomitant]
     Active Substance: ALBUTEROL SULFATE\IPRATROPIUM BROMIDE
  5. LISINOPRIL-HYDROCHLOROTHIAZIDE [Concomitant]
     Active Substance: HYDROCHLOROTHIAZIDE\LISINOPRIL
  6. LORATADINE. [Concomitant]
     Active Substance: LORATADINE
  7. LORAZEPAM. [Concomitant]
     Active Substance: LORAZEPAM
  8. TRAMADOL HCL [Concomitant]
     Active Substance: TRAMADOL HYDROCHLORIDE
  9. MUCINEX [Concomitant]
     Active Substance: GUAIFENESIN
  10. ADVAIR HFA [Suspect]
     Active Substance: FLUTICASONE PROPIONATE\SALMETEROL XINAFOATE
     Indication: ASTHMA
     Dosage: 1PUFF TWICE PER DAY
     Route: 055
     Dates: start: 2006
  11. SINGULAIR [Concomitant]
     Active Substance: MONTELUKAST SODIUM
  12. PREDNISONE. [Concomitant]
     Active Substance: PREDNISONE
  13. ASA [Suspect]
     Active Substance: ASPIRIN
     Indication: HEADACHE
     Route: 065
  14. LASIX [Concomitant]
     Active Substance: FUROSEMIDE
  15. BYSTOLIC [Concomitant]
     Active Substance: NEBIVOLOL HYDROCHLORIDE

REACTIONS (7)
  - Face injury [Recovered/Resolved]
  - Headache [Recovered/Resolved]
  - Sluggishness [Recovered/Resolved]
  - Blood viscosity increased [Recovered/Resolved]
  - Cerebrovascular accident [Recovered/Resolved]
  - Nasal dryness [Recovered/Resolved]
  - Epistaxis [Recovered/Resolved]

NARRATIVE: CASE EVENT DATE: 2011
